FAERS Safety Report 5344323-0 (Version None)
Quarter: 2007Q2

REPORT INFORMATION
  Report Type: 
  Country: None (occurrence: None)
  Receive Date: 20070604
  Receipt Date: 20070525
  Transmission Date: 20071010
  Serious: Yes (Other)
  Sender: FDA-Public Use
  Company Number: JP-BRISTOL-MYERS SQUIBB COMPANY-13698543

PATIENT
  Age: 37 Year
  Sex: Female

DRUGS (4)
  1. ARIPIPRAZOLE [Suspect]
     Indication: AFFECTIVE DISORDER
     Dosage: 15-JUL-2006 STARTED ON 6 MG DAILY;INCREASED TO 9 MG DAILY ON 02-SEP-06 AND STILL CONTINUING
     Route: 048
  2. PAROXETINE HCL [Concomitant]
     Indication: PANIC ATTACK
     Dosage: ARIPIPRAZOLE WAS INCREASED ON 02-09-2006 FROM 6/MG TO 9/MG
     Route: 048
  3. CLONAZEPAM [Concomitant]
     Indication: PANIC ATTACK
     Route: 048
  4. TOCOPHEROL ACETATE [Concomitant]
     Indication: PERIPHERAL COLDNESS
     Route: 048

REACTIONS (2)
  - ABORTION INDUCED [None]
  - DRUG EXPOSURE DURING PREGNANCY [None]
